FAERS Safety Report 7578799-5 (Version None)
Quarter: 2011Q2

REPORT INFORMATION
  Report Type: 
  Country: None (occurrence: None)
  Receive Date: 20110628
  Receipt Date: 20110616
  Transmission Date: 20111010
  Serious: Yes (Other)
  Sender: FDA-Public Use
  Company Number: US-JNJFOC-20110609119

PATIENT
  Age: 65 Year
  Sex: Female

DRUGS (2)
  1. EXTRA STRENGTH TYLENOL PM [Suspect]
     Route: 048
  2. EXTRA STRENGTH TYLENOL PM [Suspect]
     Indication: INSOMNIA
     Dosage: 1 TABLET, WHEN NEEDED
     Route: 048

REACTIONS (10)
  - PRODUCT QUALITY ISSUE [None]
  - DRY MOUTH [None]
  - PERICARDIAL EFFUSION [None]
  - HANGOVER [None]
  - NAUSEA [None]
  - FATIGUE [None]
  - DRY SKIN [None]
  - SLEEP DISORDER [None]
  - DYSGEUSIA [None]
  - DIARRHOEA [None]
